FAERS Safety Report 20423725 (Version 2)
Quarter: 2022Q1

REPORT INFORMATION
  Report Type: Spontaneous
  Country: IE (occurrence: IE)
  Receive Date: 20220203
  Receipt Date: 20220209
  Transmission Date: 20220423
  Serious: Yes (Other)
  Sender: FDA-Public Use
  Company Number: IE-BAXTER-2022BAX001910

PATIENT
  Age: 26 Year
  Sex: Female

DRUGS (3)
  1. SODIUM CHLORIDE [Suspect]
     Active Substance: SODIUM CHLORIDE
     Indication: Medication dilution
     Dosage: COLISTIMETHATE 2MU IN 55 MILLILITER (ML) NACL 0.9% THREE TIMES A DAY (TDS) IN A INTERMATE SV100 DEVI
     Route: 065
     Dates: start: 20220124
  2. COLISTIMETHATE [Suspect]
     Active Substance: COLISTIMETHATE SODIUM
     Indication: Product used for unknown indication
     Route: 065
  3. COLISTIMETHATE [Suspect]
     Active Substance: COLISTIMETHATE SODIUM
     Dosage: COLISTIMETHATE 2MU IN 55 MILLILITER (ML) NACL 0.9% THREE TIMES A DAY (TDS) IN A SV100 DEVICE
     Route: 065
     Dates: start: 20220124

REACTIONS (1)
  - Hypoaesthesia oral [Unknown]

NARRATIVE: CASE EVENT DATE: 20220126
